FAERS Safety Report 21124171 (Version 1)
Quarter: 2022Q3

REPORT INFORMATION
  Report Type: Spontaneous
  Country: US (occurrence: US)
  Receive Date: 20220725
  Receipt Date: 20220725
  Transmission Date: 20221027
  Serious: No
  Sender: FDA-Public Use
  Company Number: US-SA-SAC20220719001230

PATIENT
  Age: 34 Year
  Sex: Male
  Weight: 95.2 kg

DRUGS (3)
  1. DUPIXENT [Suspect]
     Active Substance: DUPILUMAB
     Indication: Dermatitis allergic
     Dosage: 300 MG, QOW
     Route: 058
     Dates: start: 202204
  2. ADBRY [Suspect]
     Active Substance: TRALOKINUMAB-LDRM
  3. MODERNA COVID-19 VACCINE [Concomitant]
     Active Substance: ELASOMERAN

REACTIONS (10)
  - Eczema [Not Recovered/Not Resolved]
  - Skin haemorrhage [Not Recovered/Not Resolved]
  - Skin weeping [Not Recovered/Not Resolved]
  - Skin fissures [Not Recovered/Not Resolved]
  - Skin exfoliation [Not Recovered/Not Resolved]
  - Dry skin [Not Recovered/Not Resolved]
  - Sleep disorder [Not Recovered/Not Resolved]
  - Pruritus [Not Recovered/Not Resolved]
  - Drug ineffective [Unknown]
  - Product use in unapproved indication [Unknown]

NARRATIVE: CASE EVENT DATE: 20200415
